FAERS Safety Report 5032613-0 (Version None)
Quarter: 2006Q2

REPORT INFORMATION
  Report Type: 
  Country: None (occurrence: None)
  Receive Date: 20060622
  Receipt Date: 20060515
  Transmission Date: 20061013
  Serious: Yes (Disabling, Other)
  Sender: FDA-Public Use
  Company Number: PHRM2006FR01560

PATIENT
  Age: 59 Year
  Sex: Female

DRUGS (1)
  1. FEMARA [Suspect]
     Indication: BREAST CANCER
     Dosage: 2.5 MG, QD
     Route: 048
     Dates: start: 20050601, end: 20060517

REACTIONS (7)
  - BALANCE DISORDER [None]
  - HEMIPLEGIA [None]
  - HYPERCHOLESTEROLAEMIA [None]
  - ISCHAEMIC STROKE [None]
  - MUSCLE DISORDER [None]
  - PYELONEPHRITIS [None]
  - SPEECH DISORDER [None]
